FAERS Safety Report 7732153-1 (Version None)
Quarter: 2011Q3

REPORT INFORMATION
  Report Type: 
  Country: None (occurrence: None)
  Receive Date: 20110906
  Receipt Date: 20110825
  Transmission Date: 20111222
  Serious: Yes (Hospitalization)
  Sender: FDA-Public Use
  Company Number: JP-PFIZER INC-2011134788

PATIENT
  Age: 32 Year
  Sex: Female
  Weight: 48 kg

DRUGS (4)
  1. MYSER [Concomitant]
     Indication: DRY SKIN
     Dosage: UNK, AS NEEDED
     Route: 061
     Dates: start: 20110413
  2. SODIUM BICARBONATE [Concomitant]
     Indication: PROPHYLAXIS
     Dosage: UNK, AS NEEDED
     Route: 049
     Dates: start: 20110613
  3. ACETAMINOPHEN [Concomitant]
     Indication: CANCER PAIN
     Dosage: 600 MG, AS NEEDED
     Route: 048
     Dates: start: 20101118
  4. CRIZOTINIB [Suspect]
     Indication: NON-SMALL CELL LUNG CANCER
     Dosage: 150 MG, 2X/DAY
     Route: 048
     Dates: start: 20110413, end: 20110617

REACTIONS (1)
  - INTERSTITIAL LUNG DISEASE [None]
